FAERS Safety Report 11155821 (Version 1)
Quarter: 2015Q2

REPORT INFORMATION
  Report Type: Spontaneous
  Country: PL (occurrence: PL)
  Receive Date: 20150602
  Receipt Date: 20150602
  Transmission Date: 20150821
  Serious: Yes (Other)
  Sender: FDA-Public Use
  Company Number: PL-TEVA-566224ISR

PATIENT
  Age: 52 Year
  Sex: Female
  Weight: 52 kg

DRUGS (1)
  1. PACLITAXEL. [Suspect]
     Active Substance: PACLITAXEL
     Indication: BREAST CANCER FEMALE
     Route: 042
     Dates: start: 20140331, end: 20140331

REACTIONS (4)
  - Dyspnoea [Recovered/Resolved]
  - Back pain [Recovered/Resolved]
  - Hypoaesthesia [Recovered/Resolved]
  - Anxiety [Recovered/Resolved]

NARRATIVE: CASE EVENT DATE: 20140331
